FAERS Safety Report 4831817-7 (Version None)
Quarter: 2005Q4

REPORT INFORMATION
  Report Type: 
  Country: None (occurrence: None)
  Receive Date: 20051118
  Receipt Date: 20050409
  Transmission Date: 20060501
  Serious: Yes (Other)
  Sender: FDA-Public Use
  Company Number: DE-BRISTOL-MYERS SQUIBB COMPANY-13147806

PATIENT
  Sex: Male

DRUGS (11)
  1. SUSTIVA [Suspect]
     Indication: HIV INFECTION
     Dates: start: 19980501, end: 19990401
  2. ZERIT [Suspect]
     Indication: HIV INFECTION
     Dates: start: 19971101, end: 20020101
  3. VIDEX [Suspect]
     Indication: HIV INFECTION
     Dates: start: 19971101, end: 20020101
  4. INVIRASE [Suspect]
     Indication: HIV INFECTION
     Dates: start: 19971101, end: 19980401
  5. RITONAVIR [Suspect]
     Indication: HIV INFECTION
     Dates: start: 19971101
  6. ZIDOVUDINE [Suspect]
     Indication: HIV INFECTION
     Dates: start: 19990501
  7. LAMIVUDINE [Suspect]
     Dates: start: 19990501, end: 20030101
  8. AMPRENAVIR [Suspect]
     Indication: HIV INFECTION
     Dates: start: 19990501, end: 20020101
  9. RANITIDINE [Concomitant]
  10. FLUCONAZOLE [Concomitant]
  11. FENOFIBRATE [Concomitant]
     Indication: BLOOD TRIGLYCERIDES INCREASED
     Dates: start: 20001201

REACTIONS (7)
  - ABNORMAL DREAMS [None]
  - DIABETES MELLITUS INSULIN-DEPENDENT [None]
  - DISTURBANCE IN ATTENTION [None]
  - HERPES ZOSTER [None]
  - HYPERTRIGLYCERIDAEMIA [None]
  - LIPOATROPHY [None]
  - SLEEP DISORDER [None]
